FAERS Safety Report 15176873 (Version 1)
Quarter: 2018Q3

REPORT INFORMATION
  Report Type: Report from Study
  Country: US (occurrence: US)
  Receive Date: 20180720
  Receipt Date: 20180720
  Transmission Date: 20181010
  Serious: No
  Sender: FDA-Public Use
  Company Number: US-AMGEN-USASL2018079885

PATIENT
  Sex: Female

DRUGS (1)
  1. REPATHA [Suspect]
     Active Substance: EVOLOCUMAB
     Indication: TYPE IIA HYPERLIPIDAEMIA
     Dosage: 140 MG, Q2WK
     Route: 065
     Dates: start: 201710

REACTIONS (7)
  - Dizziness [Unknown]
  - Influenza like illness [Not Recovered/Not Resolved]
  - Injection site swelling [Unknown]
  - Blood homocysteine increased [Unknown]
  - Fatigue [Unknown]
  - Arthralgia [Unknown]
  - Injection site pain [Unknown]
